FAERS Safety Report 5769119-7 (Version None)
Quarter: 2008Q2

REPORT INFORMATION
  Report Type: 
  Country: None (occurrence: None)
  Receive Date: 20080612
  Receipt Date: 20080320
  Transmission Date: 20081010
  Serious: No
  Sender: FDA-Public Use
  Company Number: US-ABBOTT-08P-163-0443754-00

PATIENT
  Sex: Female
  Weight: 71.732 kg

DRUGS (8)
  1. HUMIRA [Suspect]
     Indication: CROHN'S DISEASE
     Route: 058
     Dates: start: 20080205, end: 20080205
  2. HUMIRA [Suspect]
     Route: 058
     Dates: start: 20080219, end: 20080219
  3. HUMIRA [Suspect]
     Route: 058
     Dates: start: 20080304
  4. CHANTIX [Concomitant]
     Indication: SMOKING CESSATION THERAPY
     Route: 048
  5. CITALOPRAM HYDROBROMIDE [Concomitant]
     Indication: ANXIETY
     Route: 048
  6. FLUTICASONE PROPIONATE [Concomitant]
     Indication: ASTHMA
     Route: 048
  7. ATORVASTATIN CALCIUM [Concomitant]
     Indication: HYPERLIPIDAEMIA
  8. MONTELUKAST SODIUM [Concomitant]
     Indication: HYPERSENSITIVITY
     Route: 048

REACTIONS (1)
  - PALPITATIONS [None]
